FAERS Safety Report 6987474-7 (Version None)
Quarter: 2010Q3

REPORT INFORMATION
  Report Type: 
  Country: None (occurrence: None)
  Receive Date: 20100916
  Receipt Date: 20100908
  Transmission Date: 20110219
  Serious: Yes (Other)
  Sender: FDA-Public Use
  Company Number: PHHY2010CA56970

PATIENT
  Sex: Male

DRUGS (7)
  1. CLOZARIL [Suspect]
     Indication: PSYCHOTIC DISORDER
     Dosage: 50 MG, QHS
     Route: 048
     Dates: start: 20091201
  2. CLOZARIL [Suspect]
     Indication: PARKINSON'S DISEASE
  3. EXELON [Concomitant]
     Dosage: 10 PATCH DAILY
  4. ACETAMINOPHEN [Concomitant]
     Dosage: 1000 UNK, TID
  5. SINEMET [Concomitant]
     Dosage: 1 DF, QID
  6. COMTAN [Concomitant]
     Dosage: 200 MG, QID
  7. ACETYLSALICYLIC ACID ENTERIC COATED [Concomitant]
     Dosage: 81 MG, OD

REACTIONS (2)
  - DIPLOPIA [None]
  - EYE MOVEMENT DISORDER [None]
